FAERS Safety Report 23535147 (Version 1)
Quarter: 2024Q1

REPORT INFORMATION
  Report Type: Spontaneous
  Country: CA (occurrence: CA)
  Receive Date: 20240218
  Receipt Date: 20240218
  Transmission Date: 20240409
  Serious: Yes (Other)
  Sender: FDA-Public Use
  Company Number: CA-002147023-NVSC2024CA010796

PATIENT
  Age: 42 Year
  Sex: Female

DRUGS (20)
  1. CIPROFLOXACIN [Suspect]
     Active Substance: CIPROFLOXACIN
     Indication: Urinary tract infection
     Dosage: 500 MG
     Route: 065
  2. COSENTYX [Suspect]
     Active Substance: SECUKINUMAB
     Indication: Product used for unknown indication
     Dosage: UNK ROUTE OF ADMIN (FREE TEXT): INJECTION NOT OTHERWISE SPECIFIED
     Route: 065
  3. QUETIAPINE [Suspect]
     Active Substance: QUETIAPINE
     Indication: Product used for unknown indication
     Dosage: 25 MG, QD (1 EVERY 1 DAYS)
     Route: 048
  4. AMITRIPTYLINE [Concomitant]
     Active Substance: AMITRIPTYLINE
     Indication: Product used for unknown indication
     Dosage: UNK, QD (1 EVERY 1 DAYS)
     Route: 065
  5. CANNABIS SATIVA FLOWERING TOP [Concomitant]
     Active Substance: CANNABIS SATIVA FLOWERING TOP
     Indication: Pain
     Dosage: UNK
     Route: 055
  6. CIMZIA [Concomitant]
     Active Substance: CERTOLIZUMAB PEGOL
     Indication: Product used for unknown indication
     Dosage: UNK
     Route: 065
  7. CORTISONE [Concomitant]
     Active Substance: CORTISONE
     Indication: Urinary tract infection
     Dosage: UNK
     Route: 065
  8. CORTISONE [Concomitant]
     Active Substance: CORTISONE
     Dosage: UNK
     Route: 065
  9. CORTISONE [Concomitant]
     Active Substance: CORTISONE
     Dosage: UNK
     Route: 065
  10. CYMBALTA [Concomitant]
     Active Substance: DULOXETINE HYDROCHLORIDE
     Dosage: UNK
     Route: 048
  11. CYMBALTA [Concomitant]
     Active Substance: DULOXETINE HYDROCHLORIDE
     Indication: Product used for unknown indication
     Dosage: UNK
     Route: 065
  12. DILAUDID [Concomitant]
     Active Substance: HYDROMORPHONE HYDROCHLORIDE
     Indication: Product used for unknown indication
     Dosage: 1 MG, BID (2 EVERY 1 DAYS)
     Route: 048
  13. HYDROXYCHLOROQUINE SULFATE [Concomitant]
     Active Substance: HYDROXYCHLOROQUINE SULFATE
     Indication: Product used for unknown indication
     Dosage: UNK
     Route: 065
  14. METHOTREXATE [Concomitant]
     Active Substance: METHOTREXATE
     Indication: Product used for unknown indication
     Dosage: UNK
     Route: 065
  15. PLAQUENIL [Concomitant]
     Active Substance: HYDROXYCHLOROQUINE SULFATE
     Indication: Product used for unknown indication
     Dosage: UNK
     Route: 065
  16. Statex [Concomitant]
     Indication: Product used for unknown indication
     Dosage: UNK
     Route: 065
  17. Statex [Concomitant]
     Dosage: UNK
     Route: 065
  18. Statex [Concomitant]
     Dosage: UNK
     Route: 065
  19. Statex [Concomitant]
     Dosage: UNK
     Route: 065
  20. SULFASALAZINE [Concomitant]
     Active Substance: SULFASALAZINE
     Indication: Product used for unknown indication
     Dosage: UNK
     Route: 065

REACTIONS (20)
  - Nausea [Unknown]
  - Hyperhidrosis [Unknown]
  - Hypoaesthesia [Unknown]
  - Migraine [Unknown]
  - Muscular weakness [Unknown]
  - Pollakiuria [Unknown]
  - Rash macular [Unknown]
  - Vomiting [Unknown]
  - Weight decreased [Unknown]
  - Abdominal pain lower [Unknown]
  - Back pain [Unknown]
  - Balance disorder [Unknown]
  - Bronchitis [Unknown]
  - Dyspnoea [Unknown]
  - Faeces discoloured [Unknown]
  - Gait disturbance [Unknown]
  - Productive cough [Unknown]
  - Arthralgia [Unknown]
  - Drug ineffective [Unknown]
  - Product dose omission issue [Unknown]
